FAERS Safety Report 9227064 (Version 1)
Quarter: 2013Q2

REPORT INFORMATION
  Report Type: Spontaneous
  Country: CO (occurrence: CO)
  Receive Date: 20130412
  Receipt Date: 20130412
  Transmission Date: 20140414
  Serious: Yes (Hospitalization, Other)
  Sender: FDA-Public Use
  Company Number: CO-AMGEN-COLSP2013025317

PATIENT
  Age: 60 Year
  Sex: Female

DRUGS (4)
  1. ENBREL [Suspect]
     Indication: RHEUMATOID ARTHRITIS
     Dosage: 50 MG, WEEKLY
     Route: 058
     Dates: start: 200806, end: 20090418
  2. ACETAMINOPHEN [Suspect]
     Indication: HEADACHE
     Dosage: 500 MG, UNK
     Dates: start: 20090417
  3. LOSARTAN [Concomitant]
     Indication: HYPERTENSION
     Dosage: 40 MG, 2X/DAY
     Route: 048
     Dates: start: 2005
  4. HYDROCHLOROTHIAZIDE [Concomitant]
     Indication: HYPERTENSION
     Dosage: 20 MG, 1X/DAY
     Route: 048
     Dates: start: 2005

REACTIONS (3)
  - Headache [Recovered/Resolved]
  - Loss of consciousness [Recovered/Resolved]
  - Encephalitis viral [Recovered/Resolved with Sequelae]
